FAERS Safety Report 18689053 (Version 1)
Quarter: 2020Q4

REPORT INFORMATION
  Report Type: Spontaneous
  Country: US (occurrence: US)
  Receive Date: 20201231
  Receipt Date: 20201231
  Transmission Date: 20210114
  Serious: No
  Sender: FDA-Public Use
  Company Number: US-ASTRAZENECA-2020SF63251

PATIENT
  Sex: Male

DRUGS (4)
  1. ASTHMA RESCUE MEDICATION [Concomitant]
     Indication: ASTHMA
  2. ADVAIR HFA [Concomitant]
     Active Substance: FLUTICASONE PROPIONATE\SALMETEROL XINAFOATE
  3. SYMBICORT [Suspect]
     Active Substance: BUDESONIDE\FORMOTEROL FUMARATE DIHYDRATE
     Indication: ASTHMA
     Dosage: 2 PUFFS TWICE DAILY
     Route: 055
  4. SINGULAIR [Concomitant]
     Active Substance: MONTELUKAST SODIUM
     Indication: ASTHMA

REACTIONS (6)
  - Dyspnoea [Unknown]
  - Product dose omission issue [Unknown]
  - Condition aggravated [Unknown]
  - Productive cough [Unknown]
  - Nasopharyngitis [Unknown]
  - Cough [Unknown]
